FAERS Safety Report 13210535 (Version 1)
Quarter: 2017Q1

REPORT INFORMATION
  Report Type: Spontaneous
  Country: US (occurrence: US)
  Receive Date: 20170210
  Receipt Date: 20170210
  Transmission Date: 20170428
  Serious: Yes (Other)
  Sender: FDA-Public Use
  Company Number: US-JNJFOC-20170112553

PATIENT
  Sex: Female
  Weight: 74.39 kg

DRUGS (1)
  1. INVEGA TRINZA [Suspect]
     Active Substance: PALIPERIDONE PALMITATE
     Indication: PRODUCT USED FOR UNKNOWN INDICATION
     Route: 030
     Dates: start: 20161128, end: 20170112

REACTIONS (3)
  - Schizophrenia [Recovered/Resolved]
  - Tongue movement disturbance [Recovered/Resolved]
  - Mouth injury [Unknown]
